FAERS Safety Report 12914606 (Version 1)
Quarter: 2016Q4

REPORT INFORMATION
  Report Type: Spontaneous
  Country: US (occurrence: US)
  Receive Date: 20161106
  Receipt Date: 20161106
  Transmission Date: 20170207
  Serious: No
  Sender: FDA-Public Use
  Company Number: US-RELYPSA-RLY2016003304

PATIENT
  Sex: Male

DRUGS (15)
  1. VELTASSA [Suspect]
     Active Substance: PATIROMER
     Indication: HYPERKALAEMIA
     Dosage: 8.4 G, QD
     Route: 048
     Dates: start: 201607
  2. ALBUTEROL                          /00139501/ [Concomitant]
     Active Substance: ALBUTEROL
  3. SODIUM CITRATE. [Concomitant]
     Active Substance: SODIUM CITRATE
  4. CARVEDILOL. [Concomitant]
     Active Substance: CARVEDILOL
  5. TAMSULOSIN [Concomitant]
     Active Substance: TAMSULOSIN
  6. AMLODIPINE [Concomitant]
     Active Substance: AMLODIPINE BESYLATE
  7. ASPIRIN                            /00002701/ [Concomitant]
     Active Substance: ASPIRIN
  8. PREDNISONE. [Concomitant]
     Active Substance: PREDNISONE
  9. ADVAIR HFA [Concomitant]
     Active Substance: FLUTICASONE PROPIONATE\SALMETEROL XINAFOATE
  10. FAMOTIDINE. [Concomitant]
     Active Substance: FAMOTIDINE
  11. ATORVASTATIN [Concomitant]
     Active Substance: ATORVASTATIN
  12. CHLORTHALIDON [Concomitant]
  13. VITAMIN D3 [Concomitant]
     Active Substance: CHOLECALCIFEROL
  14. PROCRIT [Concomitant]
     Active Substance: ERYTHROPOIETIN
  15. FINASTERIDE. [Concomitant]
     Active Substance: FINASTERIDE

REACTIONS (2)
  - No adverse event [Unknown]
  - Drug dose omission [Unknown]

NARRATIVE: CASE EVENT DATE: 2016
